FAERS Safety Report 18278159 (Version 2)
Quarter: 2020Q3

REPORT INFORMATION
  Report Type: Spontaneous
  Country: US (occurrence: US)
  Receive Date: 20200917
  Receipt Date: 20200922
  Transmission Date: 20201103
  Serious: Yes (Other)
  Sender: FDA-Public Use
  Company Number: US-PFIZER INC-2020359040

PATIENT
  Age: 16 Year
  Sex: Female

DRUGS (1)
  1. BENEFIX [Suspect]
     Active Substance: COAGULATION FACTOR IX RECOMBINANT HUMAN\ISOPROPYL ALCOHOL
     Indication: FACTOR IX DEFICIENCY
     Dosage: 4500 IU, WEEKLY (BENEFIX RT 3000 UNIT, BENEFIX RT 1000 UNIT, 4500 UNITS ONCE A WEEK/AS DIRECTED)
     Route: 042
     Dates: start: 201510

REACTIONS (1)
  - Haemorrhage [Unknown]
